FAERS Safety Report 14860028 (Version 2)
Quarter: 2018Q2

REPORT INFORMATION
  Report Type: Spontaneous
  Country: TW (occurrence: TW)
  Receive Date: 20180508
  Receipt Date: 20180511
  Transmission Date: 20180711
  Serious: Yes (Death, Hospitalization)
  Sender: FDA-Public Use
  Company Number: TW-JNJFOC-20180503157

PATIENT
  Sex: Male
  Weight: 50.9 kg

DRUGS (1)
  1. ZYTIGA [Suspect]
     Active Substance: ABIRATERONE ACETATE
     Indication: PROSTATE CANCER
     Route: 048
     Dates: start: 20180320, end: 20180419

REACTIONS (7)
  - Acute respiratory failure [Fatal]
  - Pneumonia [Unknown]
  - Prostate cancer metastatic [Fatal]
  - Septic shock [Unknown]
  - Pulmonary embolism [Fatal]
  - Pleural effusion [Unknown]
  - Spinal cord compression [Unknown]

NARRATIVE: CASE EVENT DATE: 2018
